FAERS Safety Report 7606075-0 (Version None)
Quarter: 2011Q3

REPORT INFORMATION
  Report Type: 
  Country: None (occurrence: None)
  Receive Date: 20110705
  Receipt Date: 20110620
  Transmission Date: 20111222
  Serious: Yes (Other)
  Sender: FDA-Public Use
  Company Number: 2011MA007782

PATIENT
  Age: 50 Year
  Sex: Female

DRUGS (8)
  1. MICONAZOLE NITRATE [Suspect]
     Indication: VULVOVAGINAL CANDIDIASIS
     Dosage: 1000 MG;VAG
     Route: 067
  2. ATORVASTATIN [Concomitant]
  3. GLYBURIDE [Concomitant]
  4. WARFARIN [Concomitant]
  5. LISINOPRIL [Concomitant]
  6. HYDROCHLOROTHIAZIDE [Concomitant]
  7. METOPROLOL TARTRATE [Concomitant]
  8. METFORMIN HCL [Concomitant]

REACTIONS (1)
  - INTERNATIONAL NORMALISED RATIO INCREASED [None]
